FAERS Safety Report 8481996-8 (Version None)
Quarter: 2012Q3

REPORT INFORMATION
  Report Type: 
  Country: None (occurrence: None)
  Receive Date: 20120702
  Receipt Date: 20120627
  Transmission Date: 20120928
  Serious: Yes (Hospitalization)
  Sender: FDA-Public Use
  Company Number: US-EISAI INC-E2020-11000-SPO-US

PATIENT
  Age: 71 Year
  Sex: Male

DRUGS (3)
  1. ARICEPT [Suspect]
     Dosage: TIRATED TO 10 MG
     Route: 048
  2. QUETIAPINE [Concomitant]
  3. ARICEPT [Suspect]
     Route: 048

REACTIONS (1)
  - MANIA [None]
